FAERS Safety Report 12913285 (Version 1)
Quarter: 2016Q4

REPORT INFORMATION
  Report Type: Report from Study
  Country: US (occurrence: US)
  Receive Date: 20161104
  Receipt Date: 20161104
  Transmission Date: 20170207
  Serious: Yes (Other)
  Sender: FDA-Public Use
  Company Number: US-GILEAD-2016-0241485

PATIENT
  Age: 62 Year
  Sex: Female

DRUGS (8)
  1. HUMALOG MIX [Concomitant]
     Active Substance: INSULIN LISPRO
  2. AMBRISENTAN [Suspect]
     Active Substance: AMBRISENTAN
     Indication: PULMONARY HYPERTENSION
     Dosage: 10 MG, QD
     Route: 065
     Dates: start: 201609
  3. ADCIRCA [Concomitant]
     Active Substance: TADALAFIL
  4. LEVOTHYROXINE. [Concomitant]
     Active Substance: LEVOTHYROXINE
  5. IRON [Concomitant]
     Active Substance: IRON
  6. MELATONIN [Concomitant]
     Active Substance: MELATONIN
  7. PROTONIX                           /00661201/ [Concomitant]
     Active Substance: OMEPRAZOLE
  8. LANTUS [Concomitant]
     Active Substance: INSULIN GLARGINE

REACTIONS (1)
  - Dialysis [Unknown]

NARRATIVE: CASE EVENT DATE: 20161027
